FAERS Safety Report 17326573 (Version 1)
Quarter: 2020Q1

REPORT INFORMATION
  Report Type: Spontaneous
  Country: FR (occurrence: FR)
  Receive Date: 20200127
  Receipt Date: 20200127
  Transmission Date: 20200409
  Serious: Yes (Hospitalization)
  Sender: FDA-Public Use
  Company Number: FR-MYLANLABS-2020M1008230

PATIENT
  Age: 74 Year
  Sex: Male

DRUGS (12)
  1. CARBOPLATIN. [Interacting]
     Active Substance: CARBOPLATIN
     Indication: SMALL CELL LUNG CANCER METASTATIC
     Dosage: 575 MILLIGRAM, TOTAL
     Route: 041
     Dates: start: 20190928, end: 20190928
  2. OXYCODONE [Concomitant]
     Active Substance: OXYCODONE
     Indication: PAIN
     Dosage: 40 MILLIGRAM, QD
     Route: 048
     Dates: start: 20191001
  3. SOLUPRED                           /00016217/ [Concomitant]
     Active Substance: PREDNISOLONE SODIUM METAZOATE
     Dosage: 40 MILLIGRAM, QD
     Route: 048
     Dates: start: 20191001
  4. NOVORAPID [Concomitant]
     Active Substance: INSULIN ASPART
     Indication: TYPE 2 DIABETES MELLITUS
     Dosage: INCONNUE
     Route: 058
     Dates: start: 201909
  5. ELIQUIS [Concomitant]
     Active Substance: APIXABAN
     Indication: ARRHYTHMIA
     Dosage: 2 DOSAGE FORM, QD
     Route: 048
     Dates: start: 20190719, end: 20191006
  6. METHYLPREDNISOLONE. [Concomitant]
     Active Substance: METHYLPREDNISOLONE
     Indication: SMALL CELL LUNG CANCER METASTATIC
     Dosage: 40 MILLIGRAM, QD
     Route: 042
     Dates: start: 20190928, end: 20190930
  7. ABASAGLAR [Concomitant]
     Active Substance: INSULIN GLARGINE
     Dosage: 1 DOSAGE FORM, QD
     Route: 058
     Dates: start: 201909
  8. PEGFILGRASTIM [Concomitant]
     Active Substance: PEGFILGRASTIM
     Indication: NEOPLASM MALIGNANT
     Dosage: 1 DOSAGE FORM, TOTAL
     Route: 058
     Dates: start: 20190930, end: 20190930
  9. SOTALOL. [Concomitant]
     Active Substance: SOTALOL
     Indication: ARRHYTHMIA
     Dosage: 2 DOSAGE FORM, QD
     Route: 048
     Dates: start: 20190719, end: 201909
  10. ZYMAD [Concomitant]
     Active Substance: CHOLECALCIFEROL
     Dosage: 1 DOSAGE FORM, TOTAL
     Route: 048
     Dates: start: 20190928, end: 20190928
  11. DIFFU K [Concomitant]
     Active Substance: POTASSIUM CHLORIDE
     Dosage: 3600 MILLIGRAM, QD
     Route: 048
     Dates: start: 20190928, end: 20191004
  12. ETOPOSIDE. [Suspect]
     Active Substance: ETOPOSIDE
     Indication: SMALL CELL LUNG CANCER METASTATIC
     Dosage: 242 MILLIGRAM, QD
     Route: 042
     Dates: start: 20190928, end: 20190929

REACTIONS (4)
  - Anaemia [Not Recovered/Not Resolved]
  - Neutropenia [Recovered/Resolved]
  - Thrombocytopenia [Recovered/Resolved]
  - Drug interaction [Unknown]

NARRATIVE: CASE EVENT DATE: 20191002
